FAERS Safety Report 8319420-8 (Version None)
Quarter: 2012Q2

REPORT INFORMATION
  Report Type: 
  Country: None (occurrence: None)
  Receive Date: 20120427
  Receipt Date: 20120423
  Transmission Date: 20120825
  Serious: Yes (Death)
  Sender: FDA-Public Use
  Company Number: PHHY2012US035328

PATIENT
  Age: 51 Year
  Sex: Female

DRUGS (9)
  1. PAROXETINE [Suspect]
  2. BUPROPION HYDROCHLORIDE [Suspect]
  3. CYCLOBENZAPRINE [Suspect]
  4. ETHANOL [Suspect]
  5. LORAZEPAM [Suspect]
  6. SIMVASTATIN [Suspect]
  7. HYDROCHLOROTHIAZIDE [Suspect]
  8. PROPRANOLOL [Suspect]
  9. ONDANSETRON [Suspect]

REACTIONS (1)
  - COMPLETED SUICIDE [None]
